FAERS Safety Report 15270711 (Version 3)
Quarter: 2019Q2

REPORT INFORMATION
  Report Type: Report from Study
  Country: US (occurrence: US)
  Receive Date: 20180813
  Receipt Date: 20190527
  Transmission Date: 20190711
  Serious: Yes (Other)
  Sender: FDA-Public Use
  Company Number: US-SA-2018SA005534

PATIENT
  Age: 25 Year
  Sex: Female
  Weight: 81 kg

DRUGS (7)
  1. BLINDED SAR341402 [Suspect]
     Active Substance: INSULIN ASPART
     Indication: TYPE 1 DIABETES MELLITUS
     Dosage: UNK UNK,AC
     Route: 058
     Dates: start: 201801
  2. SERTRALINE [Concomitant]
     Active Substance: SERTRALINE HYDROCHLORIDE
     Dosage: UNK UNK,UNK
     Route: 048
     Dates: start: 20171101
  3. SYNTHROID [Concomitant]
     Active Substance: LEVOTHYROXINE SODIUM
     Dosage: UNK UNK,UNK
     Route: 048
     Dates: start: 20170501
  4. EXCEDRIN [CAFFEINE;PARACETAMOL] [Concomitant]
     Active Substance: ACETAMINOPHEN\CAFFEINE
     Dosage: UNK UNK,UNK
     Route: 048
     Dates: start: 2000
  5. BLINDED SAR341402 [Suspect]
     Active Substance: INSULIN ASPART
     Dosage: UNK UNK,AC
     Route: 058
     Dates: start: 20171219
  6. LANTUS [Suspect]
     Active Substance: INSULIN GLARGINE
     Dosage: 70 U, QD (TOTAL DAILY DOSE 70 U)
     Route: 058
     Dates: start: 2000, end: 20171218
  7. LANTUS [Suspect]
     Active Substance: INSULIN GLARGINE
     Indication: TYPE 1 DIABETES MELLITUS
     Dosage: UNK UNK,QD
     Route: 058
     Dates: start: 20171219

REACTIONS (4)
  - Hypoglycaemic unconsciousness [Recovered/Resolved]
  - Hypoglycaemic unconsciousness [Recovered/Resolved]
  - Hypoglycaemic unconsciousness [Recovered/Resolved]
  - Hypoglycaemic unconsciousness [Recovered/Resolved]

NARRATIVE: CASE EVENT DATE: 20180102
